FAERS Safety Report 9382213 (Version 3)
Quarter: 2013Q3

REPORT INFORMATION
  Report Type: Spontaneous
  Country: US (occurrence: US)
  Receive Date: 20130703
  Receipt Date: 20130828
  Transmission Date: 20140515
  Serious: Yes (Hospitalization)
  Sender: FDA-Public Use
  Company Number: US-TEVA-416176USA

PATIENT
  Sex: Female

DRUGS (2)
  1. TRAMADOL [Suspect]
  2. PIROXICAM [Concomitant]

REACTIONS (3)
  - Hypoaesthesia [Unknown]
  - Hypotonia [Unknown]
  - Pain in extremity [Unknown]
